FAERS Safety Report 4337167-X (Version None)
Quarter: 2004Q2

REPORT INFORMATION
  Report Type: 
  Country: None (occurrence: None)
  Receive Date: 20040408
  Receipt Date: 20040330
  Transmission Date: 20050107
  Serious: Yes (Hospitalization, Other)
  Sender: FDA-Public Use
  Company Number: DEWYE656122MAR04

PATIENT
  Sex: Female

DRUGS (1)
  1. VENLAFAXINE HCL [Suspect]
     Indication: DEPRESSION
     Dosage: 150 MG 1X PER 1 DAY ORAL
     Route: 048

REACTIONS (4)
  - FALL [None]
  - HYPOTENSION [None]
  - SYNCOPE [None]
  - VERTIGO [None]
